FAERS Safety Report 6801988-1 (Version None)
Quarter: 2010Q2

REPORT INFORMATION
  Report Type: 
  Country: None (occurrence: None)
  Receive Date: 20100629
  Receipt Date: 20030326
  Transmission Date: 20101027
  Serious: Yes (Death)
  Sender: FDA-Public Use
  Company Number: US-PFIZER INC-23100179

PATIENT
  Sex: Female
  Weight: 3 kg

DRUGS (3)
  1. ARGATROBAN [Suspect]
     Route: 042
  2. ARGATROBAN [Suspect]
     Route: 042
  3. ARGATROBAN [Suspect]
     Route: 042

REACTIONS (1)
  - HAEMORRHAGE [None]
